FAERS Safety Report 8168036-5 (Version None)
Quarter: 2012Q1

REPORT INFORMATION
  Report Type: 
  Country: None (occurrence: None)
  Receive Date: 20120227
  Receipt Date: 20120214
  Transmission Date: 20120608
  Serious: Yes (Death, Other)
  Sender: FDA-Public Use
  Company Number: PHHY2012NO012697

PATIENT
  Age: 72 Year

DRUGS (7)
  1. MEDROL [Concomitant]
  2. METOPROLOL SUCCINATE [Concomitant]
  3. ASPIRIN [Concomitant]
  4. PREDNISOLONE [Concomitant]
  5. SIMVASTATIN [Concomitant]
  6. NITROGLYCERIN [Concomitant]
  7. ZOMETA [Suspect]
     Indication: OSTEOPOROSIS

REACTIONS (4)
  - TOOTH LOSS [None]
  - DEATH [None]
  - OSTEONECROSIS OF JAW [None]
  - TOOTH INFECTION [None]
